FAERS Safety Report 4510796-6 (Version None)
Quarter: 2004Q4

REPORT INFORMATION
  Report Type: 
  Country: None (occurrence: None)
  Receive Date: 20041122
  Receipt Date: 20041112
  Transmission Date: 20050328
  Serious: Yes (Life-Threatening, Hospitalization)
  Sender: FDA-Public Use
  Company Number: J081-002-001776

PATIENT
  Age: 81 Year
  Sex: Female

DRUGS (13)
  1. ARICEPT [Suspect]
     Indication: DEMENTIA ALZHEIMER'S TYPE
     Dosage: 3 MG, 1 IN 1 D, ORAL
     Route: 048
     Dates: start: 20040804, end: 20040816
  2. DOGMATYL (SULPIRIDE) [Suspect]
     Indication: ANOREXIA
     Dosage: 50 MG, 1 IN 1 D, ORAL; 100 MG, 1 IN 1 D, ORAL
     Route: 048
     Dates: start: 20040804, end: 20040810
  3. DOGMATYL (SULPIRIDE) [Suspect]
     Indication: ANOREXIA
     Dosage: 50 MG, 1 IN 1 D, ORAL; 100 MG, 1 IN 1 D, ORAL
     Route: 048
     Dates: start: 20040811, end: 20040815
  4. GRAMALIL (TIAPRIDE HYDROCHLORIDE) [Suspect]
     Indication: ANOREXIA
     Dosage: 25 MG, 1 IN 1 D, ORAL
     Route: 048
     Dates: start: 20040804, end: 20040810
  5. LISINOPRIL [Concomitant]
  6. CYTOTEC [Concomitant]
  7. ADALAT [Concomitant]
  8. UNICALIQ L (UNICALIQ L) [Concomitant]
  9. VITAJECT (MULTIPLE VITAMIN FOR TOTAL PERENTERAL  NUTRITION) [Concomitant]
  10. MINERALIN (MANGANESE CHLORIDE/ZINC SULFATE COMBINATION DRUG) [Concomitant]
  11. GASTER (FAMOTDINE) [Concomitant]
  12. CEFAMEZIN ALFA (CEFAZOLIN SODIUM) [Concomitant]
  13. MULTIPLE VITAMIN FOR TOTAL PARENTERAL NUTRITION (SOLUTIONS FOR PARENTE [Concomitant]

REACTIONS (3)
  - BRADYCARDIA [None]
  - SICK SINUS SYNDROME [None]
  - SINUS ARREST [None]
